FAERS Safety Report 8784307 (Version 3)
Quarter: 2012Q4

REPORT INFORMATION
  Report Type: 
  Country: US (occurrence: US)
  Receive Date: 20120913
  Receipt Date: 20121121
  Transmission Date: 20130627
  Serious: No
  Sender: FDA-Public Use
  Company Number: US-PFIZER INC-2012225269

PATIENT
  Age: 54 Year
  Sex: Female
  Weight: 76.2 kg

DRUGS (4)
  1. PROTONIX [Suspect]
     Indication: PEPTIC ULCER
     Dosage: 40 mg, daily
     Dates: end: 201112
  2. PROTONIX [Suspect]
     Indication: GAS
  3. METFORMIN [Concomitant]
     Indication: DIABETES
     Dosage: 1000 mg, 2x/day
  4. GLUCOTROL [Concomitant]
     Indication: DIABETES
     Dosage: 10 mg, daily

REACTIONS (3)
  - Chest pain [Not Recovered/Not Resolved]
  - Abdominal pain upper [Not Recovered/Not Resolved]
  - Dyspepsia [Not Recovered/Not Resolved]
